FAERS Safety Report 13928224 (Version 1)
Quarter: 2017Q3

REPORT INFORMATION
  Report Type: Report from Study
  Country: JP (occurrence: JP)
  Receive Date: 20170901
  Receipt Date: 20170901
  Transmission Date: 20171127
  Serious: Yes (Other)
  Sender: FDA-Public Use
  Company Number: JP-ALXN-A201702114AA

PATIENT
  Age: 73 Year
  Sex: Female

DRUGS (2)
  1. SOLIRIS [Suspect]
     Active Substance: ECULIZUMAB
     Dosage: 1200 MG, DAILY
     Route: 042
     Dates: start: 20170216, end: 20170622
  2. SOLIRIS [Suspect]
     Active Substance: ECULIZUMAB
     Indication: HAEMOLYTIC URAEMIC SYNDROME
     Dosage: 900 MG, DAILY
     Route: 042
     Dates: start: 20170119, end: 20170209

REACTIONS (5)
  - Arthralgia [Not Recovered/Not Resolved]
  - Tuberculosis [Unknown]
  - Hepatic enzyme increased [Recovered/Resolved]
  - Myalgia [Not Recovered/Not Resolved]
  - Atypical mycobacterium test positive [Unknown]

NARRATIVE: CASE EVENT DATE: 201703
